FAERS Safety Report 15805706 (Version 1)
Quarter: 2019Q1

REPORT INFORMATION
  Report Type: Report from Study
  Country: CR (occurrence: CR)
  Receive Date: 20190110
  Receipt Date: 20190110
  Transmission Date: 20190417
  Serious: Yes (Hospitalization)
  Sender: FDA-Public Use
  Company Number: CR-SA-2019SA002868

PATIENT
  Age: 85 Year
  Sex: Female

DRUGS (2)
  1. CARDIOASPIRINA [Concomitant]
     Active Substance: ASPIRIN
     Dosage: UNK
     Route: 048
  2. HYDROCHLOROTHIAZIDE/IRBESARTAN [Suspect]
     Active Substance: HYDROCHLOROTHIAZIDE\IRBESARTAN
     Indication: HYPERTENSION
     Dosage: 1 DF (1 ORAL TABLET OF 300 MG OF IRBESARTAN, EVERY 24 HOURS), QD
     Route: 048
     Dates: start: 201501

REACTIONS (1)
  - Arthritis [Recovered/Resolved]

NARRATIVE: CASE EVENT DATE: 20181120
